FAERS Safety Report 6349593-8 (Version None)
Quarter: 2009Q3

REPORT INFORMATION
  Report Type: 
  Country: None (occurrence: None)
  Receive Date: 20090911
  Receipt Date: 20090831
  Transmission Date: 20100115
  Serious: Yes (Hospitalization, Other)
  Sender: FDA-Public Use
  Company Number: PHHY2009HN37239

PATIENT
  Age: 72 Year
  Sex: Female

DRUGS (2)
  1. DIOVAN [Suspect]
     Indication: HYPERTENSION
     Dosage: 160 MG PER DAY
     Route: 048
  2. TENORETIC 100 [Concomitant]
     Indication: HYPERTENSION

REACTIONS (5)
  - AGGRESSION [None]
  - CONFUSIONAL STATE [None]
  - CONVULSION [None]
  - HYPONATRAEMIA [None]
  - STATUS EPILEPTICUS [None]
